FAERS Safety Report 9461922 (Version 1)
Quarter: 2013Q3

REPORT INFORMATION
  Report Type: Spontaneous
  Country: US (occurrence: None)
  Receive Date: 20130815
  Receipt Date: 20130815
  Transmission Date: 20140515
  Serious: Yes (Other)
  Sender: FDA-Public Use
  Company Number: None

PATIENT
  Age: 49 Year
  Sex: Female

DRUGS (1)
  1. TECFIDERA [Suspect]
     Indication: MULTIPLE SCLEROSIS
     Dosage: 120 MG BID FOR 7 DAYS THEN BY MOUTH
     Dates: start: 20130706, end: 20130715

REACTIONS (4)
  - Flushing [None]
  - Abdominal pain [None]
  - Eructation [None]
  - Bacterial infection [None]
